FAERS Safety Report 6087515-8 (Version None)
Quarter: 2009Q1

REPORT INFORMATION
  Report Type: 
  Country: None (occurrence: None)
  Receive Date: 20090218
  Receipt Date: 20090218
  Transmission Date: 20090719
  Serious: Yes (Hospitalization)
  Sender: FDA-Public Use
  Company Number: None

PATIENT
  Age: 21 Year
  Sex: Male
  Weight: 74.3899 kg

DRUGS (1)
  1. TEGRETOL [Suspect]
     Indication: CATATONIA

REACTIONS (1)
  - STEVENS-JOHNSON SYNDROME [None]
